FAERS Safety Report 10257493 (Version 1)
Quarter: 2014Q2

REPORT INFORMATION
  Report Type: Spontaneous
  Country: US (occurrence: US)
  Receive Date: 20140625
  Receipt Date: 20140625
  Transmission Date: 20141212
  Serious: No
  Sender: FDA-Public Use
  Company Number: US-GLAXOSMITHKLINE-A1040082A

PATIENT
  Age: 84 Year
  Sex: Male

DRUGS (2)
  1. VERAMYST [Suspect]
     Indication: NASAL CONGESTION
     Dosage: 1SPR TWICE PER DAY
     Route: 045
     Dates: start: 20130722
  2. SIMVASTATIN [Concomitant]

REACTIONS (3)
  - Therapeutic response decreased [Not Recovered/Not Resolved]
  - Nasal congestion [Unknown]
  - Product quality issue [Unknown]
